FAERS Safety Report 20616261 (Version 1)
Quarter: 2022Q1

REPORT INFORMATION
  Report Type: Spontaneous
  Country: CN (occurrence: CN)
  Receive Date: 20220321
  Receipt Date: 20220321
  Transmission Date: 20220424
  Serious: Yes (Other)
  Sender: FDA-Public Use
  Company Number: CN-BAXTER-2022BAX006066

PATIENT
  Age: 78 Year
  Sex: Female
  Weight: 51 kg

DRUGS (6)
  1. CYCLOPHOSPHAMIDE [Suspect]
     Active Substance: CYCLOPHOSPHAMIDE
     Indication: Lymphoma
     Dosage: CYCLOPHOSPHAMIDE (600 MG) + NS (250 ML)
     Route: 041
     Dates: start: 20220210, end: 20220210
  2. SODIUM CHLORIDE [Suspect]
     Active Substance: SODIUM CHLORIDE
     Indication: Medication dilution
     Dosage: CYCLOPHOSPHAMIDE (600 MG) + NS (250 ML)
     Route: 041
     Dates: start: 20220210, end: 20220210
  3. SODIUM CHLORIDE [Suspect]
     Active Substance: SODIUM CHLORIDE
     Dosage: VINDESINE SULFATE (4 MG) + NS (500 ML)
     Route: 041
     Dates: start: 20220210, end: 20220210
  4. SODIUM CHLORIDE [Suspect]
     Active Substance: SODIUM CHLORIDE
     Dosage: EPIRUBICIN (20 MG) + NS (250 ML)
     Route: 041
     Dates: start: 20220210, end: 20220210
  5. VINDESINE SULFATE [Suspect]
     Active Substance: VINDESINE SULFATE
     Indication: Lymphoma
     Dosage: VINDESINE SULFATE (4 MG) + NS (500 ML)
     Route: 041
     Dates: start: 20220210, end: 20220210
  6. EPIRUBICIN HYDROCHLORIDE [Suspect]
     Active Substance: EPIRUBICIN HYDROCHLORIDE
     Indication: Lymphoma
     Dosage: EPIRUBICIN HYDROCHLORIDE (20 MG) + NS (250 ML)
     Route: 041
     Dates: start: 20220210, end: 20220210

REACTIONS (2)
  - Myelosuppression [Recovering/Resolving]
  - White blood cell count decreased [Recovering/Resolving]

NARRATIVE: CASE EVENT DATE: 20220217
